FAERS Safety Report 6141729-7 (Version None)
Quarter: 2009Q1

REPORT INFORMATION
  Report Type: 
  Country: None (occurrence: None)
  Receive Date: 20090331
  Receipt Date: 20090331
  Transmission Date: 20090719
  Serious: Yes (Life-Threatening, Hospitalization)
  Sender: FDA-Public Use
  Company Number: None

PATIENT
  Age: 54 Year
  Sex: Female
  Weight: 72.5755 kg

DRUGS (7)
  1. REMODULIN [Suspect]
     Indication: PULMONARY HYPERTENSION
     Dosage: UNKNOWN DOSE PUMP CHRONIC-LONG TERM
  2. ATENOLOL [Concomitant]
  3. LISINOPRIL [Concomitant]
  4. WARFARIN [Concomitant]
  5. GABAPENTIN [Concomitant]
  6. DARVOCET [Concomitant]
  7. ALLOPURINOL [Concomitant]

REACTIONS (9)
  - CULTURE POSITIVE [None]
  - DIARRHOEA [None]
  - INFLUENZA LIKE ILLNESS [None]
  - INJECTION SITE ABSCESS [None]
  - NAUSEA [None]
  - OXYGEN SATURATION DECREASED [None]
  - STAPHYLOCOCCAL INFECTION [None]
  - SYSTEMIC INFLAMMATORY RESPONSE SYNDROME [None]
  - VOMITING [None]
